FAERS Safety Report 8065399-6 (Version None)
Quarter: 2012Q1

REPORT INFORMATION
  Report Type: 
  Country: None (occurrence: None)
  Receive Date: 20120124
  Receipt Date: 20120119
  Transmission Date: 20120608
  Serious: Yes (Other)
  Sender: FDA-Public Use
  Company Number: US-AMGEN-USASP2012004231

PATIENT
  Age: 81 Year
  Sex: Female
  Weight: 55.79 kg

DRUGS (2)
  1. GLEEVEC [Concomitant]
     Indication: CHRONIC MYELOID LEUKAEMIA
     Dosage: 300 MG, QD
     Dates: start: 20111001
  2. PROCRIT [Suspect]
     Indication: CHRONIC MYELOID LEUKAEMIA
     Dosage: 40000 IU, QWK
     Route: 058
     Dates: start: 20111230

REACTIONS (1)
  - HAEMOGLOBIN DECREASED [None]
